FAERS Safety Report 8508288 (Version 3)
Quarter: 2013Q1

REPORT INFORMATION
  Report Type: Spontaneous
  Country: US (occurrence: US)
  Receive Date: 20120412
  Receipt Date: 20130211
  Transmission Date: 20140127
  Serious: Yes (Other)
  Sender: FDA-Public Use
  Company Number: US-ASTRAZENECA-2011SE45482

PATIENT
  Age: 63 Year
  Sex: Female

DRUGS (31)
  1. NEXIUM [Suspect]
     Indication: GASTROOESOPHAGEAL REFLUX DISEASE
     Route: 048
  2. NEXIUM [Suspect]
     Indication: GASTROOESOPHAGEAL REFLUX DISEASE
     Route: 048
  3. LISINOPRIL/HCTZ [Suspect]
     Indication: HYPERTENSION
     Route: 048
  4. OMEPRAZOLE [Suspect]
     Route: 048
  5. PRILOSEC OTC [Suspect]
     Route: 048
  6. CIPRODEX [Concomitant]
     Dosage: 4 DROPS IN LEFT EAR, TWICE A DAY, WHENEVER NEEDED.
  7. FLEXERIL [Concomitant]
  8. SKELAXIN [Concomitant]
  9. ULTRAM [Concomitant]
     Dosage: EVERY 6-8 HOURS
  10. PERIODEX [Concomitant]
     Indication: DENTAL CLEANING
     Route: 048
     Dates: start: 20100922
  11. VICODIN [Concomitant]
  12. ZYRTEC D [Concomitant]
     Indication: SINUS CONGESTION
  13. MOVE FREE [Concomitant]
     Indication: MUSCULOSKELETAL STIFFNESS
  14. ACCOLATE [Concomitant]
     Indication: ASTHMA
     Dosage: 1 AM 1 NIGHT
  15. PROVENTIL [Concomitant]
     Indication: ASTHMA
     Dosage: 2 PUFFS, 3-4 TIMES DAILY AS NEEDED.
     Route: 055
  16. BACTROBAN OINTMENT [Concomitant]
     Indication: BACTERIAL INFECTION
     Dosage: AS NEEDED
  17. LASIX [Concomitant]
     Indication: SWELLING
     Dosage: 1 AM
  18. WELLBUTRIN [Concomitant]
     Indication: ANTIDEPRESSANT THERAPY
     Dosage: SUSTAINED RELEASE, 1 AM
  19. VIVACTIL [Concomitant]
     Dosage: 2 AT NIGHT
  20. XANAX [Concomitant]
     Indication: ANXIETY
     Dosage: 3 PER DAY
  21. CELEBREX [Concomitant]
     Indication: ANTIINFLAMMATORY THERAPY
     Dosage: 1 AM
  22. EPIPEN [Concomitant]
     Indication: ALLERGY TO ARTHROPOD STING
     Dosage: AS NEEDED
  23. DUONEB [Concomitant]
     Indication: ASTHMA
     Dosage: 3-4 BREATHING TREATMENTS AS NEEDED DAILY.
  24. L-THYROXINE [Concomitant]
     Indication: THYROID DISORDER
  25. NYSTETIN OINTMENT [Concomitant]
     Indication: FUNGAL INFECTION
     Dosage: AS NEEDED
  26. VERAMIST NASAL SPRAY [Concomitant]
     Indication: MULTIPLE ALLERGIES
     Dosage: AM
  27. ASTEPRO [Concomitant]
     Dosage: AT NIGHT
     Route: 045
  28. SALINE NASAL SPRAY [Concomitant]
     Dosage: 5 TIMES DAILY
     Route: 045
  29. TOBRAMYCIN [Concomitant]
     Indication: EAR DISORDER
     Dosage: 2 DROPS IN LEFT EAR WHEN EAR PROBLEMS OCCUR, 3 TIMES DAILY
  30. PINK PEPTO BISMOL [Concomitant]
  31. ZANTAC [Concomitant]

REACTIONS (11)
  - Compression fracture [Unknown]
  - Oral disorder [Unknown]
  - Rotator cuff syndrome [Unknown]
  - Arthropathy [Unknown]
  - Abasia [Unknown]
  - Deafness [Unknown]
  - Gastrooesophageal reflux disease [Unknown]
  - Retinal disorder [Unknown]
  - Feeling abnormal [Unknown]
  - Drug dose omission [Unknown]
  - Drug ineffective [Unknown]
